FAERS Safety Report 6326366-3 (Version None)
Quarter: 2009Q3

REPORT INFORMATION
  Report Type: 
  Country: None (occurrence: None)
  Receive Date: 20090818
  Receipt Date: 20090424
  Transmission Date: 20100115
  Serious: No
  Sender: FDA-Public Use
  Company Number: WAES 0904USA03969

PATIENT
  Age: 37 Year
  Sex: Male

DRUGS (2)
  1. JANUVIA [Suspect]
     Indication: TYPE 2 DIABETES MELLITUS
     Dosage: 50 MG/BID/PO
     Route: 048
  2. LANTUS [Concomitant]

REACTIONS (2)
  - DIZZINESS [None]
  - DRUG PRESCRIBING ERROR [None]
